FAERS Safety Report 15400636 (Version 1)
Quarter: 2018Q3

REPORT INFORMATION
  Report Type: Spontaneous
  Country: US (occurrence: US)
  Receive Date: 20180919
  Receipt Date: 20180919
  Transmission Date: 20181010
  Serious: No
  Sender: FDA-Public Use
  Company Number: US-MALLINCKRODT-T201703305

PATIENT
  Sex: Male

DRUGS (1)
  1. PAMELOR [Suspect]
     Active Substance: NORTRIPTYLINE HYDROCHLORIDE
     Indication: PRODUCT USED FOR UNKNOWN INDICATION
     Route: 065

REACTIONS (3)
  - Urinary hesitation [Unknown]
  - Gastrointestinal pain [Unknown]
  - Drug intolerance [Unknown]
